FAERS Safety Report 12168188 (Version 1)
Quarter: 2016Q1

REPORT INFORMATION
  Report Type: Spontaneous
  Country: US (occurrence: None)
  Receive Date: 20160309
  Receipt Date: 20160309
  Transmission Date: 20160526
  Serious: Yes (Hospitalization)
  Sender: FDA-Public Use
  Company Number: None

PATIENT
  Age: 55 Year
  Sex: Female
  Weight: 65.6 kg

DRUGS (3)
  1. LEUCOVORIN CALCIUM. [Suspect]
     Active Substance: LEUCOVORIN CALCIUM
     Dates: end: 20160226
  2. ELOXATIN [Suspect]
     Active Substance: OXALIPLATIN
     Dates: end: 20160226
  3. 5-FLUOROURACIL (5-FU) [Suspect]
     Active Substance: FLUOROURACIL
     Dates: end: 20160226

REACTIONS (2)
  - Loss of consciousness [None]
  - Ventricular fibrillation [None]

NARRATIVE: CASE EVENT DATE: 20160301
